FAERS Safety Report 9431503 (Version 1)
Quarter: 2013Q3

REPORT INFORMATION
  Report Type: Spontaneous
  Country: US (occurrence: US)
  Receive Date: 20130730
  Receipt Date: 20130730
  Transmission Date: 20140515
  Serious: Yes (Hospitalization, Other)
  Sender: FDA-Public Use
  Company Number: US-JNJFOC-20130710858

PATIENT
  Sex: 0

DRUGS (2)
  1. ACETAMINOPHEN [Suspect]
     Route: 065
  2. ACETAMINOPHEN [Suspect]
     Indication: PROCEDURAL PAIN
     Dosage: EVERY 6 HOURS
     Route: 065

REACTIONS (3)
  - Post procedural haemorrhage [Unknown]
  - Hospitalisation [Unknown]
  - Functional gastrointestinal disorder [Unknown]
